FAERS Safety Report 17088483 (Version 1)
Quarter: 2019Q4

REPORT INFORMATION
  Report Type: Spontaneous
  Country: TR (occurrence: TR)
  Receive Date: 20191128
  Receipt Date: 20191128
  Transmission Date: 20200122
  Serious: Yes (Other)
  Sender: FDA-Public Use
  Company Number: NVSC2019TR049340

PATIENT
  Age: 36 Year
  Sex: Male

DRUGS (1)
  1. VERXANT [Suspect]
     Active Substance: SECUKINUMAB
     Indication: PSORIASIS
     Dosage: UNK
     Route: 065

REACTIONS (3)
  - Lip swelling [Recovering/Resolving]
  - Swelling of eyelid [Recovering/Resolving]
  - Angioedema [Recovering/Resolving]
